FAERS Safety Report 5999137-5 (Version None)
Quarter: 2008Q4

REPORT INFORMATION
  Report Type: 
  Country: None (occurrence: None)
  Receive Date: 20081211
  Receipt Date: 20081125
  Transmission Date: 20090506
  Serious: Yes (Death, Hospitalization)
  Sender: FDA-Public Use
  Company Number: KV200800545

PATIENT
  Age: 49 Year
  Sex: Male
  Weight: 72.6 kg

DRUGS (11)
  1. MORPHINE SULFATE (MORPHINE SULFATE) IMMEDIATE RELEASE TABLET, 15MG [Suspect]
     Indication: SPINAL CORD COMPRESSION
     Dosage: 15 MG, BID, ORAL
     Route: 048
     Dates: start: 20080601, end: 20080901
  2. PREDNISONE [Concomitant]
  3. ZOFRAN /00955301/ (ONDANSETRON) [Concomitant]
  4. LOVENOX /00889602/ (HEPARIN-FRACTION, SODIUM SALT) [Concomitant]
  5. TESTOSTERONE [Concomitant]
  6. INSULIN (INSULIN) [Concomitant]
  7. MERCAPTOPURINE [Concomitant]
  8. FENTYNAL PATCH [Concomitant]
  9. FORTEO [Concomitant]
  10. OXYCODONE HCL [Concomitant]
  11. IBUPROFEN [Concomitant]

REACTIONS (6)
  - ABDOMINAL PAIN LOWER [None]
  - DISEASE RECURRENCE [None]
  - ENTEROCUTANEOUS FISTULA [None]
  - PANCREATITIS [None]
  - PRODUCT QUALITY ISSUE [None]
  - SEPSIS [None]
